FAERS Safety Report 20453774 (Version 1)
Quarter: 2022Q1

REPORT INFORMATION
  Report Type: Spontaneous
  Country: GB (occurrence: GB)
  Receive Date: 20220210
  Receipt Date: 20220210
  Transmission Date: 20220424
  Serious: Yes (Disabling)
  Sender: FDA-Public Use
  Company Number: None

PATIENT
  Age: 78 Year
  Sex: Male
  Weight: 74 kg

DRUGS (9)
  1. ALLOPURINOL [Suspect]
     Active Substance: ALLOPURINOL
     Indication: Gout
     Dates: start: 20211118
  2. AMLODIPINE [Concomitant]
     Active Substance: AMLODIPINE BESYLATE
     Indication: Hypertension
     Dates: start: 20210319
  3. ATORVASTATIN [Concomitant]
     Active Substance: ATORVASTATIN
     Dates: start: 20191028
  4. BISOPROLOL [Concomitant]
     Active Substance: BISOPROLOL
     Dates: start: 20210319
  5. COLCHICINE [Concomitant]
     Active Substance: COLCHICINE
     Dosage: TAKE ONE OR TWO  TABLETS DAILY TO PREVENT FLARE...
     Dates: start: 20211118
  6. ISOSORBIDE MONONITRATE [Concomitant]
     Active Substance: ISOSORBIDE MONONITRATE
     Dosage: EACH MORNING
     Dates: start: 20191028
  7. OMEPRAZOLE [Concomitant]
     Active Substance: OMEPRAZOLE
     Dosage: TO PROTECT STOMACH
     Dates: start: 20210816
  8. TICAGRELOR [Concomitant]
     Active Substance: TICAGRELOR
     Dates: start: 20210816
  9. VALSARTAN [Concomitant]
     Active Substance: VALSARTAN
     Dosage: FOR HEART
     Dates: start: 20210319

REACTIONS (1)
  - Mouth ulceration [Recovering/Resolving]

NARRATIVE: CASE EVENT DATE: 20220128
